FAERS Safety Report 4896509-7 (Version None)
Quarter: 2006Q1

REPORT INFORMATION
  Report Type: 
  Country: None (occurrence: None)
  Receive Date: 20060131
  Receipt Date: 20060127
  Transmission Date: 20060701
  Serious: Yes (Other)
  Sender: FDA-Public Use
  Company Number: US-GLAXOSMITHKLINE-A0591289A

PATIENT
  Age: 87 Year
  Sex: Female

DRUGS (3)
  1. AVANDIA [Suspect]
     Dosage: 6MG PER DAY
     Route: 048
  2. COUMADIN [Concomitant]
  3. UNSPECIFIED MEDICATION [Concomitant]

REACTIONS (2)
  - CATARACT [None]
  - EYE SWELLING [None]
